FAERS Safety Report 19682691 (Version 3)
Quarter: 2021Q3

REPORT INFORMATION
  Report Type: Report from Study
  Country: CA (occurrence: CA)
  Receive Date: 20210810
  Receipt Date: 20210913
  Transmission Date: 20211014
  Serious: Yes (Hospitalization, Other)
  Sender: FDA-Public Use
  Company Number: CA-TAKEDA-2021TUS049693

PATIENT
  Age: 31 Year
  Sex: Male

DRUGS (6)
  1. VEDOLIZUMAB [Suspect]
     Active Substance: VEDOLIZUMAB
     Indication: CROHN^S DISEASE
     Dosage: 300 MILLIGRAM
     Route: 042
     Dates: start: 20150811
  2. VITAMIN D NOS [Concomitant]
     Active Substance: VITAMIN D NOS
     Dosage: UNK
  3. VEDOLIZUMAB [Suspect]
     Active Substance: VEDOLIZUMAB
     Dosage: 300 MILLIGRAM, Q4WEEKS
     Route: 042
     Dates: start: 20180326
  4. THALIDOMIDE [Concomitant]
     Active Substance: THALIDOMIDE
     Dosage: 100 MILLIGRAM, BID
     Dates: start: 2013
  5. CALCIUM [Concomitant]
     Active Substance: CALCIUM
     Dosage: UNK
  6. OXYCODONE [Concomitant]
     Active Substance: OXYCODONE
     Dosage: UNK UNK, TID

REACTIONS (3)
  - Sepsis [Unknown]
  - Fistula [Unknown]
  - Off label use [Unknown]

NARRATIVE: CASE EVENT DATE: 20180326
